FAERS Safety Report 8919178 (Version 2)
Quarter: 2012Q4

REPORT INFORMATION
  Report Type: 
  Country: JP (occurrence: JP)
  Receive Date: 20121121
  Receipt Date: 20121127
  Transmission Date: 20130627
  Serious: Yes (Death)
  Sender: FDA-Public Use
  Company Number: JP-JNJFOC-20121101476

PATIENT
  Age: 10 None
  Sex: Male
  Weight: 50 kg

DRUGS (15)
  1. ORAP [Suspect]
     Indication: SEDATION
     Route: 048
     Dates: start: 20120518
  2. RISPERDAL [Suspect]
     Indication: PRODUCT USED FOR UNKNOWN INDICATION
     Route: 065
     Dates: start: 20110309, end: 20120305
  3. ABILIFY [Suspect]
     Indication: HYPERAESTHESIA
     Route: 048
     Dates: start: 20120305
  4. ABILIFY [Suspect]
     Indication: HYPERAESTHESIA
     Route: 048
     Dates: start: 20100519, end: 20110930
  5. ABILIFY [Suspect]
     Indication: SEDATION
     Route: 048
     Dates: start: 20120305
  6. ABILIFY [Suspect]
     Indication: SEDATION
     Route: 048
     Dates: start: 20100519, end: 20110930
  7. JZOLOFT [Suspect]
     Indication: PRODUCT USED FOR UNKNOWN INDICATION
     Route: 048
     Dates: start: 20120914, end: 20121016
  8. JZOLOFT [Suspect]
     Indication: ANXIETY
     Route: 048
     Dates: start: 20120914, end: 20121016
  9. JAPANESE ENCEPHALITIS VACCINE [Suspect]
     Indication: IMMUNISATION
     Route: 065
     Dates: start: 20121017, end: 20121017
  10. ZYPREXA [Suspect]
     Indication: PRODUCT USED FOR UNKNOWN INDICATION
     Route: 065
     Dates: start: 20110404, end: 20120305
  11. MEILAX [Concomitant]
     Indication: PRODUCT USED FOR UNKNOWN INDICATION
     Route: 065
     Dates: start: 20120810, end: 20120914
  12. MEILAX [Concomitant]
     Indication: ANXIETY
     Route: 065
     Dates: start: 20120810, end: 20120914
  13. ORAP [Suspect]
     Indication: HYPERPHAGIA
     Route: 048
     Dates: start: 20120413, end: 20120518
  14. ORAP [Suspect]
     Indication: HYPERPHAGIA
     Route: 048
     Dates: start: 20120518
  15. ORAP [Suspect]
     Indication: SEDATION
     Route: 048
     Dates: start: 20120413, end: 20120518

REACTIONS (3)
  - Cardio-respiratory arrest [Fatal]
  - Incontinence [Unknown]
  - Anxiety [Unknown]
